FAERS Safety Report 5339572-1 (Version None)
Quarter: 2007Q2

REPORT INFORMATION
  Report Type: 
  Country: None (occurrence: None)
  Receive Date: 20070518
  Receipt Date: 20070305
  Transmission Date: 20071010
  Serious: Yes (Other)
  Sender: FDA-Public Use
  Company Number: 2007320584

PATIENT
  Age: 49 Year
  Sex: Female

DRUGS (10)
  1. BENADRYL [Suspect]
     Indication: HYPERSENSITIVITY
     Dosage: 1 CAPSULE DAILY AT BEDTIME (1 IN 1 D), ORAL
     Route: 048
  2. CHANTIX [Suspect]
     Indication: SMOKING CESSATION THERAPY
     Dosage: 1 MG TWICE DAILY (1 MG, 2 IN 1 D), ORAL
     Route: 048
     Dates: start: 20061214
  3. NORVASC [Suspect]
  4. NEURONTIN [Suspect]
     Dosage: 400 MG DAILY (400 MG, 1 IN 1 D)
  5. TRAMADOL HCL [Suspect]
  6. RISPERDAL [Suspect]
     Indication: SCHIZOAFFECTIVE DISORDER
     Dosage: 4 MG DAILY (4 MG, 1 IN 1 D)
  7. DIOVAN HCT [Concomitant]
  8. CYMBALTA [Concomitant]
  9. CHLORZOXAZONE [Concomitant]
  10. DARVON [Concomitant]

REACTIONS (13)
  - ABNORMAL DREAMS [None]
  - CLONUS [None]
  - DRUG INTERACTION [None]
  - EMOTIONAL DISORDER [None]
  - EXCESSIVE EYE BLINKING [None]
  - HYPERPHAGIA [None]
  - MUSCLE TIGHTNESS [None]
  - MUSCLE TWITCHING [None]
  - NERVOUSNESS [None]
  - SCHIZOAFFECTIVE DISORDER [None]
  - SMOKING CESSATION THERAPY [None]
  - STRESS [None]
  - WEIGHT INCREASED [None]
